FAERS Safety Report 26117977 (Version 1)
Quarter: 2025Q4

REPORT INFORMATION
  Report Type: Spontaneous
  Country: US (occurrence: US)
  Receive Date: 20251203
  Receipt Date: 20251203
  Transmission Date: 20260118
  Serious: Yes (Death, Life-Threatening, Hospitalization, Other)
  Sender: AMGEN
  Company Number: US-AMGEN-USASP2025234927

PATIENT
  Age: 18 Year
  Sex: Male

DRUGS (6)
  1. RITUXIMAB [Suspect]
     Active Substance: RITUXIMAB
     Indication: Lung transplant rejection
     Dosage: 375 MICROGRAM/SQ. METER, INFUSION
     Route: 065
  2. DARATUMUMAB [Suspect]
     Active Substance: DARATUMUMAB
     Indication: Lung transplant rejection
     Dosage: 16 MILLIGRAM/KILOGRAM
     Route: 065
  3. Immunoglobulin [Concomitant]
     Dosage: 1 GRAM PER KILOGRAM
     Route: 040
  4. METHYLPREDNISOLONE [Concomitant]
     Active Substance: METHYLPREDNISOLONE
     Indication: Lung transplant rejection
     Dosage: 10 MILLIGRAM/KILOGRAM
  5. DIPHENHYDRAMINE [Concomitant]
     Active Substance: DIPHENHYDRAMINE
     Indication: Lung transplant rejection
  6. DIPHENHYDRAMINE [Concomitant]
     Active Substance: DIPHENHYDRAMINE
     Indication: Acute pulmonary oedema

REACTIONS (11)
  - Death [Fatal]
  - Acute respiratory failure [Unknown]
  - Respiratory failure [Unknown]
  - Respiratory acidosis [Unknown]
  - Shock [Unknown]
  - Renal failure [Unknown]
  - Disseminated intravascular coagulation [Unknown]
  - Encephalopathy [Unknown]
  - Acute pulmonary oedema [Unknown]
  - Cytokine release syndrome [Unknown]
  - Off label use [Unknown]
